FAERS Safety Report 13239252 (Version 1)
Quarter: 2017Q1

REPORT INFORMATION
  Report Type: Spontaneous
  Country: US (occurrence: US)
  Receive Date: 20170216
  Receipt Date: 20170216
  Transmission Date: 20170428
  Serious: No
  Sender: FDA-Public Use
  Company Number: US-BAYER-2017-031108

PATIENT
  Age: 73 Year
  Sex: Female
  Weight: 61 kg

DRUGS (2)
  1. ALEVE [Suspect]
     Active Substance: NAPROXEN SODIUM
     Indication: BACK PAIN
     Dosage: UNK UNK, QD 1-2 A DAY
     Route: 048
     Dates: start: 2012
  2. PRAVACHOL [Concomitant]
     Active Substance: PRAVASTATIN SODIUM
     Dosage: UNK

REACTIONS (3)
  - Product use issue [Unknown]
  - Circumstance or information capable of leading to medication error [Unknown]
  - Product closure removal difficult [None]

NARRATIVE: CASE EVENT DATE: 2012
